FAERS Safety Report 7121114-1 (Version None)
Quarter: 2010Q4

REPORT INFORMATION
  Report Type: 
  Country: None (occurrence: None)
  Receive Date: 20101124
  Receipt Date: 20100615
  Transmission Date: 20110411
  Serious: No
  Sender: FDA-Public Use
  Company Number: US-PFIZER INC-2010074864

PATIENT
  Age: 75 Year
  Sex: Female

DRUGS (2)
  1. TIKOSYN [Suspect]
     Indication: ATRIAL FIBRILLATION
  2. DRONEDARONE [Suspect]
     Indication: ATRIAL FIBRILLATION

REACTIONS (1)
  - DRUG INEFFECTIVE [None]
